FAERS Safety Report 8445825-0 (Version None)
Quarter: 2012Q2

REPORT INFORMATION
  Report Type: 
  Country: None (occurrence: None)
  Receive Date: 20120323
  Receipt Date: 20111220
  Transmission Date: 20120825
  Serious: Yes (Hospitalization, Other)
  Sender: FDA-Public Use
  Company Number: 163-21880-11063123

PATIENT
  Age: 80 Year
  Sex: Female
  Weight: 62.14 kg

DRUGS (2)
  1. REVLIMID [Suspect]
     Indication: MULTIPLE MYELOMA
     Dosage: 5 MG, 1 IN 1 D, PO, 5 MG, 1 IN 1 D, PO
     Route: 048
     Dates: start: 20110715
  2. REVLIMID [Suspect]
     Indication: MULTIPLE MYELOMA
     Dosage: 5 MG, 1 IN 1 D, PO, 5 MG, 1 IN 1 D, PO
     Route: 048
     Dates: start: 20110501

REACTIONS (5)
  - NAUSEA [None]
  - DEHYDRATION [None]
  - RENAL FAILURE ACUTE [None]
  - DIVERTICULITIS [None]
  - CLOSTRIDIUM DIFFICILE COLITIS [None]
